FAERS Safety Report 26170950 (Version 1)
Quarter: 2025Q4

REPORT INFORMATION
  Report Type: Spontaneous
  Country: US (occurrence: US)
  Receive Date: 20251217
  Receipt Date: 20251217
  Transmission Date: 20260117
  Serious: No
  Sender: SANOFI AVENTIS
  Company Number: US-SA-2025SA372201

PATIENT
  Age: 6 Year
  Sex: Male

DRUGS (2)
  1. DUPIXENT [Suspect]
     Active Substance: DUPILUMAB
     Indication: Eosinophilic oesophagitis
     Dosage: 200 MG, QOW
     Route: 058
     Dates: start: 202510, end: 2025
  2. DUPIXENT [Suspect]
     Active Substance: DUPILUMAB
     Dosage: 200 MG
     Route: 065

REACTIONS (4)
  - Vomiting [Unknown]
  - Cough [Unknown]
  - Pyrexia [Unknown]
  - Inappropriate schedule of product administration [Unknown]
